FAERS Safety Report 13646245 (Version 1)
Quarter: 2017Q2

REPORT INFORMATION
  Report Type: Other
  Country: FR (occurrence: FR)
  Receive Date: 20170613
  Receipt Date: 20170613
  Transmission Date: 20170830
  Serious: Yes (Hospitalization)
  Sender: FDA-Public Use
  Company Number: FR-GE HEALTHCARE LIFE SCIENCES-OMPQ-PR-1508S-1364

PATIENT

DRUGS (6)
  1. NIMOTOP [Concomitant]
     Active Substance: NIMODIPINE
     Dosage: ,
     Dates: start: 20150518
  2. ROCEPHINE [Suspect]
     Active Substance: CEFTRIAXONE SODIUM
     Indication: MENINGITIS
     Dosage: UNK
     Route: 042
     Dates: start: 20150518, end: 20150520
  3. XENETIX [Suspect]
     Active Substance: IOBITRIDOL
     Indication: PRODUCT USED FOR UNKNOWN INDICATION
     Dosage: UNK
     Dates: start: 20150521, end: 20160526
  4. OMNIPAQUE [Suspect]
     Active Substance: IOHEXOL
     Indication: MENINGORRHAGIA
     Dosage: 50 ML, SINGLE
     Route: 042
     Dates: start: 20150518, end: 20150518
  5. OMNIPAQUE [Suspect]
     Active Substance: IOHEXOL
     Dosage: 50 ML, SINGLE
     Route: 042
     Dates: start: 20150523, end: 20150523
  6. AMOXICILLIN. [Suspect]
     Active Substance: AMOXICILLIN
     Indication: MENINGITIS
     Dosage: UNK
     Route: 042
     Dates: start: 20150518, end: 20150520

REACTIONS (2)
  - Drug reaction with eosinophilia and systemic symptoms [Recovered/Resolved]
  - Condition aggravated [Recovered/Resolved]

NARRATIVE: CASE EVENT DATE: 20150520
